FAERS Safety Report 15105499 (Version 1)
Quarter: 2018Q3

REPORT INFORMATION
  Report Type: Spontaneous
  Country: JP (occurrence: JP)
  Receive Date: 20180704
  Receipt Date: 20180704
  Transmission Date: 20181010
  Serious: Yes (Other)
  Sender: FDA-Public Use
  Company Number: JP-JNJFOC-20180639920

PATIENT
  Sex: Male

DRUGS (1)
  1. ZYTIGA [Suspect]
     Active Substance: ABIRATERONE ACETATE
     Indication: HORMONE-REFRACTORY PROSTATE CANCER
     Route: 048

REACTIONS (10)
  - Decreased appetite [Unknown]
  - Hepatic function abnormal [Unknown]
  - Renal impairment [Unknown]
  - Palpitations [Unknown]
  - Pneumonia [Unknown]
  - Duodenal ulcer [Unknown]
  - Infection [Unknown]
  - Tremor [Unknown]
  - Rhabdomyolysis [Unknown]
  - Drug eruption [Unknown]
